FAERS Safety Report 14112189 (Version 1)
Quarter: 2017Q4

REPORT INFORMATION
  Report Type: Spontaneous
  Country: US (occurrence: US)
  Receive Date: 20171020
  Receipt Date: 20171020
  Transmission Date: 20180321
  Serious: Yes (Other)
  Sender: FDA-Public Use
  Company Number: US-ELI_LILLY_AND_COMPANY-US201710004725

PATIENT
  Age: 82 Year
  Sex: Female

DRUGS (3)
  1. HUMALOG [Suspect]
     Active Substance: INSULIN LISPRO
     Indication: TYPE 1 DIABETES MELLITUS
     Dosage: UNK
     Route: 058
  2. TRESIBA [Suspect]
     Active Substance: INSULIN DEGLUDEC
     Indication: TYPE 1 DIABETES MELLITUS
     Dosage: 82 U, EACH MORNING
     Route: 058
  3. TRESIBA [Suspect]
     Active Substance: INSULIN DEGLUDEC
     Dosage: 20 U, EACH EVENING
     Route: 058

REACTIONS (8)
  - Macular degeneration [Not Recovered/Not Resolved]
  - Fall [Recovering/Resolving]
  - Impaired gastric emptying [Not Recovered/Not Resolved]
  - Eating disorder [Unknown]
  - Wrist fracture [Recovering/Resolving]
  - Lactose intolerance [Not Recovered/Not Resolved]
  - Coeliac disease [Unknown]
  - Hypersensitivity [Unknown]

NARRATIVE: CASE EVENT DATE: 2016
